FAERS Safety Report 6402113-1 (Version None)
Quarter: 2009Q4

REPORT INFORMATION
  Report Type: 
  Country: None (occurrence: None)
  Receive Date: 20091015
  Receipt Date: 20091002
  Transmission Date: 20100525
  Serious: Yes (Other)
  Sender: FDA-Public Use
  Company Number: JP-PFIZER INC-2009279784

PATIENT

DRUGS (5)
  1. ZOLOFT [Suspect]
     Dosage: UNK
     Route: 048
  2. TOLEDOMIN [Suspect]
     Route: 048
  3. RISPERIDONE [Suspect]
     Dosage: 2MG/DAY
     Route: 048
     Dates: start: 20090801
  4. LORAZEPAM [Suspect]
     Route: 048
  5. AKINETON [Concomitant]
     Dosage: UNK
     Route: 048

REACTIONS (1)
  - HYPERGLYCAEMIA [None]
